FAERS Safety Report 20435627 (Version 1)
Quarter: 2022Q1

REPORT INFORMATION
  Report Type: Spontaneous
  Country: IN (occurrence: IN)
  Receive Date: 20220207
  Receipt Date: 20220207
  Transmission Date: 20220423
  Serious: Yes (Other)
  Sender: FDA-Public Use
  Company Number: None

PATIENT
  Age: 58 Year
  Sex: Female

DRUGS (1)
  1. PREDNISOLONE [Suspect]
     Active Substance: PREDNISOLONE
     Indication: Facial paralysis
     Dosage: 50 MILLIGRAM, PER DAY (24 HOURS) (APPRX 1 MG/KG/DAY)
     Route: 048

REACTIONS (1)
  - Chorioretinopathy [Recovered/Resolved]
